FAERS Safety Report 12596579 (Version 2)
Quarter: 2016Q3

REPORT INFORMATION
  Report Type: Report from Study
  Country: KR (occurrence: KR)
  Receive Date: 20160726
  Receipt Date: 20160826
  Transmission Date: 20161109
  Serious: Yes (Hospitalization)
  Sender: FDA-Public Use
  Company Number: KR-ROCHE-1714430

PATIENT
  Age: 29 Year
  Sex: Female
  Weight: 57.6 kg

DRUGS (14)
  1. ATEZOLIZUMAB [Suspect]
     Active Substance: ATEZOLIZUMAB
     Indication: RENAL CELL CARCINOMA
     Dosage: MOST RECENT DOSE PRIOR TO THE ONSET OF EVENTS: 04/FEB/2016 (1200 MG)
     Route: 042
     Dates: start: 20160204
  2. ARESTAL [Concomitant]
     Active Substance: LOPERAMIDE OXIDE
     Indication: DIARRHOEA
     Route: 048
     Dates: start: 20160224, end: 20160228
  3. RANITIDINE HCL [Concomitant]
     Active Substance: RANITIDINE HYDROCHLORIDE
     Indication: INFLUENZA LIKE ILLNESS
     Route: 048
     Dates: start: 20160216, end: 20160219
  4. BEVACIZUMAB [Suspect]
     Active Substance: BEVACIZUMAB
     Indication: RENAL CELL CARCINOMA
     Dosage: MOST RECENT DOSE PRIOR TO THE ONSET OF EVENTS: 04/FEB/2016
     Route: 042
     Dates: start: 20160204
  5. NORMAL SALINE [Concomitant]
     Active Substance: SODIUM CHLORIDE
     Route: 042
     Dates: start: 20160219, end: 20160226
  6. KIDORASE [Concomitant]
     Indication: INFLUENZA LIKE ILLNESS
     Dosage: STREPTODORNASE 2500 IU, STREPTOKINASE 10000 IU, 1 TABLET
     Route: 048
     Dates: start: 20160216, end: 20160219
  7. ACETAMINOPHEN. [Concomitant]
     Active Substance: ACETAMINOPHEN
     Indication: INFLUENZA LIKE ILLNESS
     Route: 048
     Dates: start: 20160216, end: 20160219
  8. MEGACE SUSPENSION [Concomitant]
     Indication: DECREASED APPETITE
     Route: 048
     Dates: start: 20160221, end: 20160228
  9. SMECTA [Concomitant]
     Active Substance: MONTMORILLONITE
     Indication: DIARRHOEA
     Route: 048
     Dates: start: 20160221, end: 20160224
  10. BUSCOPAN [Concomitant]
     Active Substance: BUTYLSCOPOLAMINE BROMIDE
     Indication: DIARRHOEA
     Route: 048
     Dates: start: 20160221, end: 20160228
  11. TAZOPERAN (PIPERACILLIN/TAZOBACTAM) [Concomitant]
     Indication: PYREXIA
     Route: 042
     Dates: start: 20160220, end: 20160221
  12. ACETAMINOPHEN. [Concomitant]
     Active Substance: ACETAMINOPHEN
     Indication: INFLUENZA LIKE ILLNESS
     Route: 048
     Dates: start: 20160216, end: 20160219
  13. DEXTROSE. [Concomitant]
     Active Substance: DEXTROSE
     Dosage: 10%NA/K-2
     Route: 042
     Dates: start: 20160223, end: 20160226
  14. GASTER (SOUTH KOREA) [Concomitant]
     Route: 048
     Dates: start: 20160227, end: 20160228

REACTIONS (2)
  - Pain in extremity [Recovered/Resolved]
  - Colitis [Recovered/Resolved]

NARRATIVE: CASE EVENT DATE: 20160217
